FAERS Safety Report 7273290-8 (Version None)
Quarter: 2011Q1

REPORT INFORMATION
  Report Type: 
  Country: None (occurrence: None)
  Receive Date: 20110203
  Receipt Date: 20101209
  Transmission Date: 20110831
  Serious: No
  Sender: FDA-Public Use
  Company Number: US-ABBOTT-10P-163-0691038-00

PATIENT
  Sex: Female
  Weight: 56.296 kg

DRUGS (3)
  1. PREFEST [Concomitant]
     Indication: HORMONE REPLACEMENT THERAPY
  2. SYNTHROID [Suspect]
     Indication: HYPOTHYROIDISM
     Dates: start: 20080101, end: 20101205
  3. SYNTHROID [Suspect]
     Dosage: TOOK 1/2 TABLET
     Dates: start: 20101207, end: 20101207

REACTIONS (3)
  - BLOOD PRESSURE INCREASED [None]
  - BLOOD THYROID STIMULATING HORMONE INCREASED [None]
  - HYPOTENSION [None]
